FAERS Safety Report 8215693-0 (Version None)
Quarter: 2012Q1

REPORT INFORMATION
  Report Type: 
  Country: None (occurrence: None)
  Receive Date: 20120316
  Receipt Date: 20120307
  Transmission Date: 20120608
  Serious: Yes (Hospitalization)
  Sender: FDA-Public Use
  Company Number: JP-VERTEX PHARMACEUTICALS INC.-AE-2012-003529

PATIENT
  Age: 49 Year
  Sex: Female

DRUGS (9)
  1. TELAVIC (TELAPREVIR) [Suspect]
     Indication: HEPATITIS C
     Route: 048
     Dates: start: 20120125, end: 20120301
  2. PEGINTERFERON ALFA-2B [Concomitant]
     Indication: HEPATITIS C
     Route: 058
     Dates: start: 20120125, end: 20120229
  3. LOXONIN [Concomitant]
  4. TELAVIC (TELAPREVIR) [Suspect]
     Route: 048
     Dates: start: 20120302, end: 20120302
  5. REBETOL [Concomitant]
     Indication: HEPATITIS C
     Route: 048
     Dates: start: 20120125, end: 20120228
  6. LEXAPRO [Concomitant]
     Route: 048
  7. MUCOSTA [Concomitant]
  8. REBETOL [Concomitant]
     Route: 048
     Dates: start: 20120229, end: 20120305
  9. TRAZODONE HCL [Concomitant]
     Route: 048

REACTIONS (2)
  - DIZZINESS [None]
  - ASTHENIA [None]
